FAERS Safety Report 23352278 (Version 3)
Quarter: 2024Q1

REPORT INFORMATION
  Report Type: Report from Study
  Country: US (occurrence: None)
  Receive Date: 20231229
  Receipt Date: 20240115
  Transmission Date: 20240409
  Serious: Yes (Other)
  Sender: FDA-Public Use
  Company Number: 2023A296323

PATIENT
  Age: 71 Year
  Sex: Female
  Weight: 71.2 kg

DRUGS (9)
  1. FARXIGA [Suspect]
     Active Substance: DAPAGLIFLOZIN PROPANEDIOL
     Route: 048
  2. SUCRALFATE [Concomitant]
     Active Substance: SUCRALFATE
  3. VITAMIN D [Concomitant]
     Active Substance: VITAMIN D NOS
  4. AMLODIPINE BESYLATE [Concomitant]
     Active Substance: AMLODIPINE BESYLATE
  5. LISINOPRIL AND HYDROCHLOROTHIAZIDE [Concomitant]
     Active Substance: HYDROCHLOROTHIAZIDE\LISINOPRIL
     Dosage: 20-12.5 MG
  6. PRAVASTATIN SODIUM [Concomitant]
     Active Substance: PRAVASTATIN SODIUM
  7. ANASTROZOLE [Concomitant]
     Active Substance: ANASTROZOLE
  8. OZEMPIC [Concomitant]
     Active Substance: SEMAGLUTIDE
  9. CITRACAL PETITES/VITAMIN D [Concomitant]
     Dosage: 200-250 MG UNIT
     Route: 048

REACTIONS (2)
  - Blood glucose increased [Unknown]
  - Weight increased [Unknown]
